FAERS Safety Report 19250422 (Version 1)
Quarter: 2021Q2

REPORT INFORMATION
  Report Type: Spontaneous
  Country: TN (occurrence: TN)
  Receive Date: 20210512
  Receipt Date: 20210512
  Transmission Date: 20210717
  Serious: Yes (Other)
  Sender: FDA-Public Use
  Company Number: TN-ENDO PHARMACEUTICALS INC-2021-002847

PATIENT
  Age: 58 Year
  Sex: Male

DRUGS (4)
  1. DOXAZOSIN MESYLATE. [Suspect]
     Active Substance: DOXAZOSIN MESYLATE
     Indication: URETEROLITHIASIS
  2. NSAID (UNSPECIFIED) [Concomitant]
     Active Substance: UNSPECIFIED INGREDIENT
     Indication: RENAL COLIC
  3. DOXAZOSIN MESYLATE. [Suspect]
     Active Substance: DOXAZOSIN MESYLATE
     Indication: RENAL COLIC
     Dosage: UNK UNKNOWN, UNKNOWN
     Route: 065
  4. NSAID (UNSPECIFIED) [Concomitant]
     Active Substance: UNSPECIFIED INGREDIENT
     Indication: URETEROLITHIASIS

REACTIONS (3)
  - Off label use [Recovered/Resolved]
  - Lupus-like syndrome [Recovered/Resolved]
  - Nephropathy [Recovered/Resolved]
